FAERS Safety Report 21480450 (Version 1)
Quarter: 2022Q4

REPORT INFORMATION
  Report Type: Report from Study
  Country: PR (occurrence: PR)
  Receive Date: 20221019
  Receipt Date: 20221019
  Transmission Date: 20230113
  Serious: No
  Sender: FDA-Public Use
  Company Number: PR-ABBVIE-4137111

PATIENT
  Sex: Male
  Weight: 122.01 kg

DRUGS (1)
  1. VENCLEXTA [Suspect]
     Active Substance: VENETOCLAX
     Indication: Acute myeloid leukaemia
     Route: 048
     Dates: start: 20190723

REACTIONS (3)
  - Abdominal discomfort [Unknown]
  - White blood cell count decreased [Unknown]
  - Flatulence [Unknown]
